FAERS Safety Report 5899864-4 (Version None)
Quarter: 2008Q3

REPORT INFORMATION
  Report Type: 
  Country: None (occurrence: None)
  Receive Date: 20080926
  Receipt Date: 20080724
  Transmission Date: 20090109
  Serious: No
  Sender: FDA-Public Use
  Company Number: US-BAYER-200829563NA

PATIENT
  Sex: Female

DRUGS (1)
  1. MIRENA [Suspect]
     Indication: DRUG USE FOR UNKNOWN INDICATION
     Route: 015
     Dates: end: 20080721

REACTIONS (6)
  - ABDOMINAL PAIN [None]
  - MIGRAINE [None]
  - MOOD SWINGS [None]
  - POST PROCEDURAL HAEMORRHAGE [None]
  - PROCEDURAL HEADACHE [None]
  - WEIGHT INCREASED [None]
